FAERS Safety Report 22019960 (Version 2)
Quarter: 2023Q2

REPORT INFORMATION
  Report Type: Report from Study
  Country: DE (occurrence: None)
  Receive Date: 20230222
  Receipt Date: 20230413
  Transmission Date: 20230722
  Serious: Yes (Hospitalization)
  Sender: FDA-Public Use
  Company Number: DE-ROCHE-3167335

PATIENT
  Age: 48 Year
  Sex: Female
  Weight: 103.6 kg

DRUGS (20)
  1. ATEZOLIZUMAB [Suspect]
     Active Substance: ATEZOLIZUMAB
     Indication: Triple negative breast cancer
     Dosage: DATE OF LAST DOSE PRIOR TO SAE: 12 APR 2022
     Route: 042
     Dates: start: 20211116
  2. PACLITAXEL [Suspect]
     Active Substance: PACLITAXEL
     Indication: Triple negative breast cancer
     Dosage: DATE OF LAST DOSE PRIOR TO SAE: 01 FEB 2022
     Route: 042
     Dates: start: 20211116
  3. CARBOPLATIN [Suspect]
     Active Substance: CARBOPLATIN
     Indication: Triple negative breast cancer
     Dosage: DATE OF LAST DOSE PRIOR TO SAE: 01 FEB 2022
     Route: 042
     Dates: start: 20211116
  4. EPIRUBICIN [Suspect]
     Active Substance: EPIRUBICIN
     Indication: Triple negative breast cancer
     Dosage: DATE OF LAST DOSE PRIOR TO SAE: 12 APR 2022
     Route: 042
     Dates: start: 20220208
  5. CYCLOPHOSPHAMIDE [Suspect]
     Active Substance: CYCLOPHOSPHAMIDE
     Indication: Triple negative breast cancer
     Dosage: DATE OF LAST DOSE PRIOR TO SAE: 12 APR 2022
     Route: 042
     Dates: start: 20220208
  6. MAGALDRATE [Concomitant]
     Active Substance: MAGALDRATE
     Dosage: 10 ML AS NEEDED
     Dates: start: 20211129
  7. XERODENT [Concomitant]
     Dosage: 1 TABLET AS NEEDED
     Dates: start: 20211129
  8. AMPICILLIN [Concomitant]
     Active Substance: AMPICILLIN
     Dates: start: 20220228, end: 20220301
  9. APREPITANT [Concomitant]
     Active Substance: APREPITANT
     Dosage: 125/80 MG
     Dates: start: 20211116, end: 20220412
  10. GRANISETRON [Concomitant]
     Active Substance: GRANISETRON
     Dates: start: 20211116, end: 20220412
  11. GRANISETRON [Concomitant]
     Active Substance: GRANISETRON
     Dates: start: 20211116, end: 20220412
  12. DEXAMETHASONE [Concomitant]
     Active Substance: DEXAMETHASONE
     Dates: start: 20211116, end: 20220412
  13. DEXAMETHASONE [Concomitant]
     Active Substance: DEXAMETHASONE
     Dates: start: 20211116, end: 20220412
  14. DIMETHINDENE [Concomitant]
     Active Substance: DIMETHINDENE
     Dates: start: 20211116, end: 20220201
  15. METOCLOPRAMIDE [Concomitant]
     Active Substance: METOCLOPRAMIDE
     Dates: start: 20211116, end: 20220201
  16. MESNA [Concomitant]
     Active Substance: MESNA
     Dates: start: 20220208, end: 20220412
  17. NEULASTA [Concomitant]
     Active Substance: PEGFILGRASTIM
     Dates: start: 20220302, end: 20220413
  18. HALOPERIDOL [Concomitant]
     Active Substance: HALOPERIDOL
     Dates: start: 20220701, end: 20220704
  19. LORAZEPAM [Concomitant]
     Active Substance: LORAZEPAM
     Dates: start: 20220701, end: 20220704
  20. AMINO ACIDS\DEXTROSE\ELECTROLYTES NOS\SOYBEAN OIL [Concomitant]
     Active Substance: AMINO ACIDS\DEXTROSE\ELECTROLYTES NOS\SOYBEAN OIL
     Dates: start: 20220628, end: 20220704

REACTIONS (1)
  - Post-acute COVID-19 syndrome [Recovered/Resolved with Sequelae]

NARRATIVE: CASE EVENT DATE: 20220628
